FAERS Safety Report 9456146 (Version 1)
Quarter: 2013Q3

REPORT INFORMATION
  Report Type: Spontaneous
  Country: GB (occurrence: GB)
  Receive Date: 20130813
  Receipt Date: 20130813
  Transmission Date: 20140515
  Serious: Yes (Other)
  Sender: FDA-Public Use
  Company Number: GB-BAYER-2013-085702

PATIENT
  Sex: Female

DRUGS (2)
  1. CANESTEN COMBI 500MG PESSARY + 2% CREAM [Suspect]
     Indication: VULVOVAGINAL CANDIDIASIS
     Dosage: UNK
  2. CANESTEN COMBI 500MG PESSARY + 2% CREAM [Suspect]
     Indication: VULVOVAGINAL CANDIDIASIS

REACTIONS (1)
  - Metrorrhagia [Recovered/Resolved]
